FAERS Safety Report 14194108 (Version 2)
Quarter: 2020Q4

REPORT INFORMATION
  Report Type: Spontaneous
  Country: DE (occurrence: DE)
  Receive Date: 20171116
  Receipt Date: 20201208
  Transmission Date: 20210113
  Serious: Yes (Other)
  Sender: FDA-Public Use
  Company Number: DE-CIPLA LTD.-2017DE07469

PATIENT

DRUGS (10)
  1. TEMOZOLOMIDE. [Interacting]
     Active Substance: TEMOZOLOMIDE
     Dosage: 150 MG/M2, PER DAY/CYCLE FOR FIRST 2 CYCLES
     Route: 048
  2. LEVETIRACETAM. [Interacting]
     Active Substance: LEVETIRACETAM
     Indication: PARTIAL SEIZURES
     Dosage: 1000 MG/DAY, STARTING DOSE
     Route: 065
     Dates: start: 2014
  3. TEMOZOLOMIDE. [Interacting]
     Active Substance: TEMOZOLOMIDE
     Dosage: 200 MG/M2/DAY/CYCLE FOR 3 CYCLES
     Route: 048
     Dates: start: 2014
  4. LORAZEPAM. [Interacting]
     Active Substance: LORAZEPAM
     Indication: PARTIAL SEIZURES
     Dosage: 1 MG/D, PRN
     Route: 065
     Dates: start: 2014
  5. VALPROIC ACID. [Interacting]
     Active Substance: VALPROIC ACID
     Indication: PRODUCT USED FOR UNKNOWN INDICATION
     Dosage: UNK
     Route: 065
  6. ARTESUNATE [Interacting]
     Active Substance: ARTESUNATE
     Indication: PRODUCT USED FOR UNKNOWN INDICATION
     Dosage: 200 MG, PER DAY
     Route: 065
     Dates: start: 20150920, end: 20151020
  7. CLOBAZAM. [Interacting]
     Active Substance: CLOBAZAM
     Indication: PARTIAL SEIZURES
     Dosage: 5 MG/D, PRN
     Route: 065
     Dates: start: 2014
  8. LEVETIRACETAM. [Interacting]
     Active Substance: LEVETIRACETAM
     Dosage: 2750 MG/DAY, ESCALATED DOSE
     Route: 065
     Dates: start: 2014
  9. ONDANSETRON [Concomitant]
     Active Substance: ONDANSETRON
     Indication: PROPHYLAXIS OF NAUSEA AND VOMITING
     Dosage: 8 MG, PER DAY
     Route: 065
     Dates: start: 2014
  10. TEMOZOLOMIDE. [Suspect]
     Active Substance: TEMOZOLOMIDE
     Indication: GLIOBLASTOMA MULTIFORME
     Dosage: 50 MG/M2, PER DAY
     Route: 048
     Dates: start: 2014

REACTIONS (5)
  - Condition aggravated [Recovered/Resolved]
  - Leukopenia [Recovered/Resolved]
  - Glioblastoma multiforme [Recovered/Resolved]
  - Drug interaction [Unknown]
  - Hepatotoxicity [Recovered/Resolved]

NARRATIVE: CASE EVENT DATE: 2015
